FAERS Safety Report 8603442-3 (Version None)
Quarter: 2012Q3

REPORT INFORMATION
  Report Type: 
  Country: None (occurrence: None)
  Receive Date: 20120806
  Receipt Date: 20120723
  Transmission Date: 20120928
  Serious: Yes (Death, Hospitalization)
  Sender: FDA-Public Use
  Company Number: 2012SP000870

PATIENT
  Age: 15 Year
  Sex: Female

DRUGS (11)
  1. VORICONAZOLE [Suspect]
     Indication: BRONCHOPULMONARY ASPERGILLOSIS
     Dosage: ; IV
     Route: 042
     Dates: start: 20120514, end: 20120531
  2. COLISTIN [Concomitant]
  3. GENTAMICIN [Suspect]
     Indication: BRONCHOPULMONARY ASPERGILLOSIS
     Dosage: 170 UG;	;IV
     Route: 042
     Dates: start: 20120526, end: 20120530
  4. CYCLOSPORINE [Suspect]
     Indication: APLASIA
     Dosage: 200 MG;	;PO
     Route: 048
     Dates: start: 20120423, end: 20120531
  5. TICARCILLIN DISODIUM/CLAVULANATE POTASSIUM (CLAVENTIN  /00973701/) [Suspect]
     Indication: BRONCHOPULMONARY ASPERGILLOSIS
     Dosage: ; IV
     Route: 042
     Dates: start: 20120528, end: 20120601
  6. TRIMETHOPRIM + SULFAMETHOXAZOLE [Suspect]
     Indication: PROPHYLAXIS
     Dosage: ; TID; IV
     Route: 042
     Dates: start: 20120401
  7. ATGAM [Concomitant]
  8. CANCIDAS [Suspect]
     Indication: BRONCHOPULMONARY ASPERGILLOSIS
     Dosage: ; IV
     Route: 042
     Dates: start: 20120528, end: 20120530
  9. CIPROFLOXACIN [Concomitant]
     Indication: PRODUCT USED FOR UNKNOWN INDICATION
  10. FILGRASTIM [Concomitant]
  11. VANCOMYCIN [Suspect]
     Indication: BRONCHOPULMONARY ASPERGILLOSIS
     Dosage: 2 GM; IV
     Route: 042
     Dates: start: 20120522

REACTIONS (5)
  - RENAL FAILURE ACUTE [None]
  - NEPHROPATHY TOXIC [None]
  - MULTIPLE DRUG OVERDOSE [None]
  - RESPIRATORY DISTRESS [None]
  - DRUG INTERACTION [None]
